FAERS Safety Report 6634001-X (Version None)
Quarter: 2010Q1

REPORT INFORMATION
  Report Type: 
  Country: None (occurrence: None)
  Receive Date: 20100315
  Receipt Date: 20100302
  Transmission Date: 20100710
  Serious: Yes (Other)
  Sender: FDA-Public Use
  Company Number: PHHY2010AU12946

PATIENT
  Sex: Female

DRUGS (4)
  1. TEGRETOL [Suspect]
     Dosage: 1 MG DAILY
     Dates: start: 20100202
  2. TEGRETOL [Suspect]
     Dosage: 5 MG DAILY
     Dates: start: 20100215
  3. NAPROXEN [Concomitant]
  4. ENDONE [Concomitant]

REACTIONS (6)
  - HAEMATURIA [None]
  - PAIN [None]
  - PAIN IN EXTREMITY [None]
  - PELVIC PAIN [None]
  - SENSATION OF HEAVINESS [None]
  - TUBULOINTERSTITIAL NEPHRITIS [None]
